FAERS Safety Report 4622087-3 (Version None)
Quarter: 2005Q1

REPORT INFORMATION
  Report Type: 
  Country: None (occurrence: None)
  Receive Date: 20050329
  Receipt Date: 20050315
  Transmission Date: 20050727
  Serious: Yes (Hospitalization, Other)
  Sender: FDA-Public Use
  Company Number: 2005S1001222

PATIENT
  Age: 45 Year
  Sex: Female
  Weight: 77.1115 kg

DRUGS (1)
  1. FENTANYL TRANSDERMAL SYSTEM ( 100MCG/HR) [Suspect]
     Indication: NECK PAIN
     Dosage: 100 MCG;TRDL
     Dates: start: 20050228

REACTIONS (7)
  - ADRENAL INSUFFICIENCY [None]
  - DRUG EFFECT DECREASED [None]
  - NAUSEA [None]
  - PAIN [None]
  - PHARMACEUTICAL PRODUCT COMPLAINT [None]
  - STRESS [None]
  - VOMITING [None]
